FAERS Safety Report 6585592-9 (Version None)
Quarter: 2010Q1

REPORT INFORMATION
  Report Type: 
  Country: None (occurrence: None)
  Receive Date: 20100217
  Receipt Date: 20100204
  Transmission Date: 20100710
  Serious: Yes (Other)
  Sender: FDA-Public Use
  Company Number: US-ELI_LILLY_AND_COMPANY-US200911006658

PATIENT
  Sex: Male
  Weight: 125.85 kg

DRUGS (18)
  1. BYETTA [Suspect]
     Dosage: 5 UG, 2/D
     Dates: start: 20090101, end: 20090101
  2. BYETTA [Suspect]
     Dosage: 5 UG, 2/D
     Route: 058
     Dates: start: 20091009, end: 20091027
  3. BYETTA [Suspect]
     Dosage: 10 UG, 2/D
     Route: 058
     Dates: start: 20091027, end: 20091209
  4. ASPIRIN [Concomitant]
     Dosage: 325 MG, DAILY (1/D)
     Route: 048
     Dates: end: 20090101
  5. ASPIRIN [Concomitant]
     Dosage: 81 MG, UNK
     Route: 048
     Dates: start: 20090101
  6. COREG [Concomitant]
     Dosage: 25 MG, 2/D
     Route: 048
     Dates: end: 20090101
  7. COREG [Concomitant]
     Dosage: 37.5 MG, 2/D
     Route: 048
     Dates: start: 20090101
  8. FERROUS SULFATE TAB [Concomitant]
     Dosage: 325 MG, DAILY (1/D)
  9. GLIMEPIRIDE [Concomitant]
     Dosage: 2 MG, 2/D
     Route: 048
  10. JANUVIA [Concomitant]
     Dosage: 100 MG, DAILY (1/D)
     Route: 048
     Dates: end: 20090101
  11. JANUVIA [Concomitant]
     Dosage: 50 MG, DAILY (1/D)
     Route: 048
     Dates: start: 20090101
  12. LANTUS [Concomitant]
     Dosage: 20 U, DAILY (1/D)
     Route: 058
     Dates: end: 20091027
  13. LIPITOR [Concomitant]
     Dosage: 10 MG, DAILY (1/D)
     Route: 048
     Dates: start: 20090706, end: 20090101
  14. LIPITOR [Concomitant]
     Dosage: 40 MG, DAILY (1/D)
     Route: 048
     Dates: start: 20091027
  15. LIPITOR [Concomitant]
     Dosage: 10 MG, DAILY (1/D)
     Route: 048
     Dates: start: 20091027
  16. LISINOPRIL [Concomitant]
     Dosage: 20 MG, DAILY (1/D)
     Dates: end: 20090101
  17. PEPCID [Concomitant]
     Dosage: 20 MG, 2/D
     Route: 048
  18. PLAVIX [Concomitant]
     Dosage: 75 MG, DAILY (1/D)
     Route: 048

REACTIONS (2)
  - OFF LABEL USE [None]
  - RENAL FAILURE ACUTE [None]
